FAERS Safety Report 4905580-5 (Version None)
Quarter: 2006Q1

REPORT INFORMATION
  Report Type: 
  Country: None (occurrence: None)
  Receive Date: 20060113
  Receipt Date: 20051128
  Transmission Date: 20060701
  Serious: No
  Sender: FDA-Public Use
  Company Number: 2005SP004130

PATIENT
  Age: 57 Year
  Sex: Female
  Weight: 49.8957 kg

DRUGS (5)
  1. LUNESTA [Suspect]
     Indication: MIDDLE INSOMNIA
     Dosage: 2 MG;PRN;ORAL; 4 MG;PRN;ORAL
     Route: 048
     Dates: start: 20051101, end: 20051101
  2. LUNESTA [Suspect]
     Indication: MIDDLE INSOMNIA
     Dosage: 2 MG;PRN;ORAL; 4 MG;PRN;ORAL
     Route: 048
     Dates: start: 20051127
  3. LAMOTRIGINE [Concomitant]
  4. CELEXA [Concomitant]
  5. ATOMOXETINE [Concomitant]

REACTIONS (2)
  - DRUG INEFFECTIVE [None]
  - MIDDLE INSOMNIA [None]
